FAERS Safety Report 19926919 (Version 1)
Quarter: 2021Q4

REPORT INFORMATION
  Report Type: Spontaneous
  Country: US (occurrence: US)
  Receive Date: 20211007
  Receipt Date: 20211007
  Transmission Date: 20220303
  Serious: No
  Sender: FDA-Public Use
  Company Number: US-INDIVIOR US-INDV-126998-2020

PATIENT
  Sex: Male

DRUGS (3)
  1. SUBOXONE [Suspect]
     Active Substance: BUPRENORPHINE HYDROCHLORIDE\NALOXONE HYDROCHLORIDE
     Indication: Pain
     Dosage: UNK
     Route: 065
     Dates: start: 2015
  2. SUBUTEX [Suspect]
     Active Substance: BUPRENORPHINE HYDROCHLORIDE
     Indication: Pain
     Dosage: 8 MILLIGRAM, TID
     Route: 065
  3. XANAX [Suspect]
     Active Substance: ALPRAZOLAM
     Indication: Product used for unknown indication
     Dosage: UNK
     Route: 065
     Dates: start: 201611

REACTIONS (5)
  - Off label use [Recovered/Resolved]
  - Abdominal discomfort [Unknown]
  - Palpitations [Unknown]
  - Inappropriate schedule of product administration [Recovered/Resolved]
  - Drug abuse [Recovered/Resolved]

NARRATIVE: CASE EVENT DATE: 20150101
